FAERS Safety Report 6645693-3 (Version None)
Quarter: 2010Q1

REPORT INFORMATION
  Report Type: 
  Country: None (occurrence: None)
  Receive Date: 20100308
  Receipt Date: 20100106
  Transmission Date: 20100710
  Serious: Yes (Other)
  Sender: FDA-Public Use
  Company Number: AUR-APL-2010-00083 (0)

PATIENT

DRUGS (1)
  1. SERTRALINE 100MG TABLET [Suspect]

REACTIONS (2)
  - SWOLLEN TONGUE [None]
  - TONGUE BLISTERING [None]
